FAERS Safety Report 20257232 (Version 1)
Quarter: 2021Q4

REPORT INFORMATION
  Report Type: Spontaneous
  Country: US (occurrence: None)
  Receive Date: 20211230
  Receipt Date: 20211230
  Transmission Date: 20220303
  Serious: No
  Sender: FDA-Public Use
  Company Number: 2021A901818

PATIENT

DRUGS (1)
  1. PRILOSEC OTC [Suspect]
     Active Substance: OMEPRAZOLE MAGNESIUM
     Indication: Dyspepsia
     Dosage: 1 TABLET FOR 5 DAYS1.0DF UNKNOWN
     Route: 048

REACTIONS (3)
  - Feeling hot [Unknown]
  - Regurgitation [Unknown]
  - Drug ineffective [Unknown]
